FAERS Safety Report 21609130 (Version 1)
Quarter: 2022Q4

REPORT INFORMATION
  Report Type: Spontaneous
  Country: DE (occurrence: DE)
  Receive Date: 20221117
  Receipt Date: 20221117
  Transmission Date: 20230112
  Serious: Yes (Hospitalization, Other)
  Sender: FDA-Public Use
  Company Number: None

PATIENT
  Age: 27 Year
  Sex: Female
  Weight: 58 kg

DRUGS (1)
  1. CYTOTEC [Suspect]
     Active Substance: MISOPROSTOL
     Indication: Labour induction
     Dosage: ONCE HALVED, THEN A WHOLE TABLET
     Route: 048
     Dates: start: 20191231, end: 20191231

REACTIONS (16)
  - Restlessness [Recovered/Resolved with Sequelae]
  - Depression [Recovered/Resolved with Sequelae]
  - Obsessive thoughts [Recovered/Resolved with Sequelae]
  - Panic attack [Recovered/Resolved with Sequelae]
  - Flashback [Recovered/Resolved with Sequelae]
  - Headache [Recovered/Resolved with Sequelae]
  - Suicidal ideation [Recovered/Resolved with Sequelae]
  - Post-traumatic stress disorder [Recovered/Resolved with Sequelae]
  - Anxiety [Recovered/Resolved with Sequelae]
  - Disturbance in attention [Recovered/Resolved with Sequelae]
  - Insomnia [Recovered/Resolved with Sequelae]
  - Quality of life decreased [Not Recovered/Not Resolved]
  - Uterine tachysystole [Unknown]
  - Uterine hyperstimulation [Unknown]
  - Overdose [Unknown]
  - Off label use [Unknown]

NARRATIVE: CASE EVENT DATE: 20191231
